FAERS Safety Report 20035112 (Version 2)
Quarter: 2021Q4

REPORT INFORMATION
  Report Type: Report from Study
  Country: DE (occurrence: DE)
  Receive Date: 20211104
  Receipt Date: 20211115
  Transmission Date: 20220303
  Serious: Yes (Other)
  Sender: FDA-Public Use
  Company Number: DE-TAKEDA-2021TUS042126

PATIENT
  Age: 36 Year
  Sex: Female

DRUGS (17)
  1. CANDESARTAN [Suspect]
     Active Substance: CANDESARTAN
     Indication: Hypertension
     Dosage: 16 MILLIGRAM, QD
     Route: 048
  2. PANTOPRAZOLE [Suspect]
     Active Substance: PANTOPRAZOLE
     Indication: Gastric disorder
     Dosage: 20 MILLIGRAM, QD
     Route: 048
  3. CORTISONE [Suspect]
     Active Substance: CORTISONE
     Indication: Product used for unknown indication
     Dosage: 5 MILLIGRAM, QD
     Route: 048
  4. PARATHYROID HORMONE [Suspect]
     Active Substance: PARATHYROID HORMONE
     Indication: Hypoparathyroidism
     Dosage: 25 MICROGRAM, QD
     Route: 058
     Dates: start: 20170928
  5. PARATHYROID HORMONE [Suspect]
     Active Substance: PARATHYROID HORMONE
     Dosage: 25 MICROGRAM, QD
     Route: 058
     Dates: start: 20170928
  6. ADALIMUMAB [Concomitant]
     Active Substance: ADALIMUMAB
     Indication: Crohn^s disease
     Dosage: 40 MILLIGRAM, BIWEEKLY
     Route: 058
  7. CALCITRAT [Concomitant]
     Indication: Hypoparathyroidism
     Dosage: UNK UNK, QD
     Route: 048
  8. CALCIUM CARBONATE\CHOLECALCIFEROL [Concomitant]
     Active Substance: CALCIUM CARBONATE\CHOLECALCIFEROL
     Indication: Hypoparathyroidism
     Dosage: UNK UNK, QD
     Route: 048
  9. KALIUM-R [Concomitant]
     Indication: Hypokalaemia
     Dosage: 9 DOSAGE FORM, QD
     Route: 048
  10. CALCITRIOL [Concomitant]
     Active Substance: CALCITRIOL
     Indication: Hypoparathyroidism
     Dosage: UNK
     Route: 048
  11. CALCIUM                            /07362501/ [Concomitant]
     Indication: Hypoparathyroidism
     Dosage: UNK
     Route: 048
  12. MAGNESIUM VERLA                    /02088501/ [Concomitant]
     Indication: Hypoparathyroidism
     Dosage: UNK UNK, QD, (4-5 SACHETS)
     Route: 048
  13. L-THYROXIN                         /00068002/ [Concomitant]
     Indication: Thyroidectomy
     Dosage: 150 MICROGRAM, QD
     Route: 048
  14. XIPAMIDE [Concomitant]
     Active Substance: XIPAMIDE
     Indication: Oedema
     Dosage: 20 MILLIGRAM, QD
     Route: 048
  15. XIPAMIDE [Concomitant]
     Active Substance: XIPAMIDE
     Indication: Hypertension
  16. SPIRONOLACTONE [Concomitant]
     Active Substance: SPIRONOLACTONE
     Indication: Oedema
     Dosage: 25 MILLIGRAM, QD
     Route: 048
  17. MAGNESIUM VERLA CONCENTRATED [Concomitant]
     Indication: Hypoparathyroidism
     Dosage: UNK UNK, 1X/DAY
     Route: 048

REACTIONS (6)
  - Abortion spontaneous [Recovered/Resolved]
  - Device issue [Recovered/Resolved]
  - Therapy interrupted [Recovered/Resolved]
  - Diarrhoea [Recovered/Resolved]
  - Pregnancy [Recovered/Resolved]
  - Maternal exposure during pregnancy [Recovered/Resolved]

NARRATIVE: CASE EVENT DATE: 20210401
